FAERS Safety Report 8602199-X (Version None)
Quarter: 2012Q3

REPORT INFORMATION
  Report Type: 
  Country: None (occurrence: None)
  Receive Date: 20120817
  Receipt Date: 20120813
  Transmission Date: 20120928
  Serious: Yes (Hospitalization, Other)
  Sender: FDA-Public Use
  Company Number: US-PFIZER INC-2012125950

PATIENT
  Age: 31 Year
  Sex: Female
  Weight: 81.633 kg

DRUGS (8)
  1. EFFEXOR [Suspect]
     Indication: DEPRESSION
     Dosage: UNK
  2. AMBIEN [Concomitant]
     Indication: SLEEP DISORDER
     Dosage: 10 MG, DAILY AT NIGHT
  3. ADDERALL [Concomitant]
     Dosage: UNK
  4. PRISTIQ [Suspect]
     Indication: DEPRESSION
     Dosage: 100 MG, DAILY
     Dates: start: 20100101
  5. LAMICTAL [Concomitant]
     Indication: MOOD ALTERED
     Dosage: 150 MG, UNK
  6. NUVIGIL [Concomitant]
     Indication: SLEEP DISORDER
     Dosage: 250 MG, DAILY
  7. LAMICTAL [Concomitant]
     Indication: DEPRESSION
  8. CYMBALTA [Suspect]
     Indication: DEPRESSION
     Dosage: UNK
     Dates: end: 20100101

REACTIONS (5)
  - DEPRESSION [None]
  - DRUG INEFFECTIVE [None]
  - ANXIETY [None]
  - EMOTIONAL DISORDER [None]
  - HYPERTENSION [None]
